FAERS Safety Report 22818983 (Version 2)
Quarter: 2024Q3

REPORT INFORMATION
  Report Type: Spontaneous
  Country: BR (occurrence: BR)
  Receive Date: 20230814
  Receipt Date: 20240710
  Transmission Date: 20241016
  Serious: Yes (Hospitalization, Other)
  Sender: GLAXOSMITHKLINE
  Company Number: BR-GLAXOSMITHKLINE-BR2023AMR105051

PATIENT

DRUGS (1)
  1. SERETIDE [Suspect]
     Active Substance: FLUTICASONE PROPIONATE\SALMETEROL XINAFOATE
     Indication: Chronic obstructive pulmonary disease
     Dosage: 4 PUFF(S), QD, 50/250MCG 1X60D
     Route: 055
     Dates: start: 2009

REACTIONS (6)
  - Pneumonia [Unknown]
  - Endotracheal intubation [Recovered/Resolved]
  - Inability to afford medication [Unknown]
  - Inappropriate schedule of product administration [Unknown]
  - Expired product administered [Unknown]
  - Product prescribing error [Unknown]

NARRATIVE: CASE EVENT DATE: 20230624
